FAERS Safety Report 13622008 (Version 1)
Quarter: 2017Q2

REPORT INFORMATION
  Report Type: Report from Study
  Country: DE (occurrence: DE)
  Receive Date: 20170607
  Receipt Date: 20170607
  Transmission Date: 20170830
  Serious: Yes (Hospitalization)
  Sender: FDA-Public Use
  Company Number: DE-CELGENEUS-DEU-2015121027

PATIENT
  Age: 63 Year
  Sex: Male
  Weight: 98 kg

DRUGS (1)
  1. ABRAXANE [Suspect]
     Active Substance: PACLITAXEL
     Indication: PANCREATIC CARCINOMA
     Dosage: 240 MILLIGRAM
     Route: 041
     Dates: start: 20150331, end: 20150804

REACTIONS (1)
  - Photosensitivity reaction [Recovered/Resolved]

NARRATIVE: CASE EVENT DATE: 20150818
